FAERS Safety Report 10248767 (Version 1)
Quarter: 2014Q2

REPORT INFORMATION
  Report Type: Spontaneous
  Country: GB (occurrence: None)
  Receive Date: 20140618
  Receipt Date: 20140618
  Transmission Date: 20141212
  Serious: No
  Sender: FDA-Public Use
  Company Number: B0847276A

PATIENT
  Age: 33 Year
  Sex: Female
  Weight: 52.89 kg

DRUGS (1)
  1. PAROXETINE HYDROCHLORIDE [Suspect]
     Indication: DEPRESSION
     Route: 048
     Dates: start: 20090808

REACTIONS (3)
  - Loss of libido [None]
  - Weight decreased [None]
  - Paraesthesia [None]
